FAERS Safety Report 4816102-1 (Version None)
Quarter: 2005Q4

REPORT INFORMATION
  Report Type: 
  Country: None (occurrence: None)
  Receive Date: 20051026
  Receipt Date: 20050921
  Transmission Date: 20060501
  Serious: Yes (Hospitalization)
  Sender: FDA-Public Use
  Company Number: 2005BI017682

PATIENT
  Age: 39 Year
  Sex: Female

DRUGS (11)
  1. AVONEX [Suspect]
     Indication: MULTIPLE SCLEROSIS
     Dosage: 30 UG; QW; IM
     Route: 030
     Dates: start: 19960712, end: 20050812
  2. ELAVIL [Concomitant]
  3. LOPERAMIDE [Concomitant]
  4. ZANAFLEX [Concomitant]
  5. XANAX [Concomitant]
  6. WELLBUTRIN XL [Concomitant]
  7. LORTAB [Concomitant]
  8. TRAZODONE HCL [Concomitant]
  9. MEDROL [Concomitant]
  10. RELAFEN [Concomitant]
  11. NEURONTIN [Concomitant]

REACTIONS (6)
  - ALANINE AMINOTRANSFERASE INCREASED [None]
  - ASPARTATE AMINOTRANSFERASE INCREASED [None]
  - DEHYDRATION [None]
  - DEPRESSED LEVEL OF CONSCIOUSNESS [None]
  - SEPSIS [None]
  - UROSEPSIS [None]
